FAERS Safety Report 13085072 (Version 2)
Quarter: 2017Q1

REPORT INFORMATION
  Report Type: Spontaneous
  Country: ES (occurrence: ES)
  Receive Date: 20170104
  Receipt Date: 20170206
  Transmission Date: 20170428
  Serious: Yes (Hospitalization)
  Sender: FDA-Public Use
  Company Number: ES-JNJFOC-20161226087

PATIENT
  Age: 80 Year
  Sex: Female

DRUGS (11)
  1. QUETIAPINE. [Interacting]
     Active Substance: QUETIAPINE
     Indication: AGITATION
     Dosage: 1-0-1.5
     Route: 048
     Dates: start: 20120112
  2. LORAZEPAM. [Concomitant]
     Active Substance: LORAZEPAM
     Indication: INSOMNIA
     Dosage: 0-0-1
     Route: 048
     Dates: start: 20090615
  3. RISPERDAL [Suspect]
     Active Substance: RISPERIDONE
     Indication: AGITATION
     Dosage: 1-0-1
     Route: 048
     Dates: start: 20150430, end: 20150605
  4. PROMETAX [Interacting]
     Active Substance: RIVASTIGMINE
     Indication: DEMENTIA ALZHEIMER^S TYPE
     Dosage: 1-0-0
     Route: 062
     Dates: start: 20120112
  5. ENALAPRIL [Concomitant]
     Active Substance: ENALAPRIL
     Indication: HYPERTENSION
     Dosage: 1-0-0
     Route: 048
     Dates: start: 20090615
  6. ENALAPRIL [Concomitant]
     Active Substance: ENALAPRIL
     Indication: HYPERTENSION
     Dosage: 1-0-0; DOSE INCREASED
     Route: 048
  7. IBUPROFEN. [Interacting]
     Active Substance: IBUPROFEN
     Indication: INTERVERTEBRAL DISC PROTRUSION
     Dosage: 1-1-1
     Route: 048
     Dates: start: 20150430, end: 20150602
  8. TRAZODONE HYDROCHLORIDE. [Interacting]
     Active Substance: TRAZODONE HYDROCHLORIDE
     Indication: DEPRESSION
     Dosage: 0-0-1
     Route: 048
     Dates: start: 20120112
  9. NEURONTIN [Interacting]
     Active Substance: GABAPENTIN
     Indication: INTERVERTEBRAL DISC PROTRUSION
     Dosage: 1-0-1
     Route: 048
     Dates: start: 20030503
  10. PARACETAMOL [Concomitant]
     Active Substance: ACETAMINOPHEN
     Indication: PAIN
     Dosage: 1-1-1
     Route: 048
     Dates: start: 20090615
  11. SIMVASTATIN. [Concomitant]
     Active Substance: SIMVASTATIN
     Indication: DYSLIPIDAEMIA
     Dosage: 0-0-1
     Route: 048
     Dates: start: 20090615

REACTIONS (2)
  - Acute kidney injury [Recovered/Resolved]
  - Drug interaction [Recovered/Resolved]

NARRATIVE: CASE EVENT DATE: 20150605
